FAERS Safety Report 16740221 (Version 2)
Quarter: 2019Q3

REPORT INFORMATION
  Report Type: Spontaneous
  Country: TR (occurrence: TR)
  Receive Date: 20190826
  Receipt Date: 20190909
  Transmission Date: 20191005
  Serious: Yes (Death, Other)
  Sender: FDA-Public Use
  Company Number: TR-MYLANLABS-2019M1079657

PATIENT
  Age: 65 Year
  Sex: Female

DRUGS (9)
  1. LEPONEX [Suspect]
     Active Substance: CLOZAPINE
     Dosage: 75MG, UNK ON DAY 8 AND 9
     Route: 048
  2. QUETIAPINE                         /01270902/ [Concomitant]
     Active Substance: QUETIAPINE FUMARATE
     Indication: PRODUCT USED FOR UNKNOWN INDICATION
  3. LEPONEX [Suspect]
     Active Substance: CLOZAPINE
     Dosage: 100 MG, UNK ON DAY 10 AND 11
     Route: 048
  4. LITHIUM                            /00033702/ [Concomitant]
     Active Substance: LITHIUM CARBONATE
     Indication: PRODUCT USED FOR UNKNOWN INDICATION
  5. LEPONEX [Suspect]
     Active Substance: CLOZAPINE
     Dosage: 25 PLUS 100 MG ON DAY 12, 13 AND 14
     Route: 048
  6. VALPROIC ACID                      /00228502/ [Concomitant]
     Active Substance: VALPROATE SODIUM
     Indication: PRODUCT USED FOR UNKNOWN INDICATION
  7. LEPONEX [Suspect]
     Active Substance: CLOZAPINE
     Dosage: 50 MG, UNK ON DAY 5, 6 AND 7
     Route: 048
  8. LEPONEX [Suspect]
     Active Substance: CLOZAPINE
     Indication: SCHIZOAFFECTIVE DISORDER
     Dosage: 12.5 MG, QD ON DAY 1 AND 2
     Route: 065
     Dates: start: 20151005
  9. LEPONEX [Suspect]
     Active Substance: CLOZAPINE
     Dosage: 25 UNK, UNK ON DAY 3 AND 4
     Route: 048

REACTIONS (2)
  - Eosinophilic myocarditis [Fatal]
  - Hypertension [Fatal]
